FAERS Safety Report 12649913 (Version 8)
Quarter: 2017Q3

REPORT INFORMATION
  Report Type: Report from Study
  Country: JP (occurrence: JP)
  Receive Date: 20160813
  Receipt Date: 20170911
  Transmission Date: 20171127
  Serious: Yes (Death, Hospitalization)
  Sender: FDA-Public Use
  Company Number: JP-AMGEN-JPNCT2016102752

PATIENT
  Age: 79 Year
  Sex: Male
  Weight: 65 kg

DRUGS (19)
  1. PRAVASTATIN SODIUM. [Concomitant]
     Active Substance: PRAVASTATIN SODIUM
     Dosage: 5 MG, QD
     Route: 048
     Dates: start: 20150608, end: 20160914
  2. NIFEDIPINE. [Concomitant]
     Active Substance: NIFEDIPINE
     Dosage: 20 MG, BID
     Route: 048
     Dates: start: 20150515, end: 20160915
  3. ASPARTATE CALCIUM [Concomitant]
     Active Substance: CALCIUM ASPARTATE
     Dosage: 400 MG, BID
     Route: 048
     Dates: start: 20120604
  4. LOXOPROFEN SODIUM HYDRATE [Concomitant]
     Active Substance: LOXOPROFEN SODIUM DIHYDRATE
     Dosage: 60 MG BID-100 MG, AS NECESSARY
     Dates: start: 20150828, end: 20170731
  5. REBAMIPIDE [Concomitant]
     Active Substance: REBAMIPIDE
     Dosage: 100 MG, BID
     Route: 048
     Dates: start: 20151004, end: 20170821
  6. TELMISARTAN. [Concomitant]
     Active Substance: TELMISARTAN
     Dosage: 20 MG, BID
     Route: 048
     Dates: start: 20131219, end: 20160915
  7. ALFACALCIDOL [Concomitant]
     Active Substance: ALFACALCIDOL
     Dosage: 0.5 MUG, BID
     Route: 048
     Dates: start: 20120604
  8. FERROMIA [Concomitant]
     Active Substance: FERROUS CITRATE
     Dosage: 50 MG, AT BED TIME
     Route: 048
     Dates: start: 20160121
  9. PROPIVERINE HCL [Concomitant]
     Dosage: 20 MG, QD
     Route: 048
     Dates: start: 20160324, end: 20160807
  10. EVOLOCUMAB [Suspect]
     Active Substance: EVOLOCUMAB
     Indication: HYPERCHOLESTEROLAEMIA
     Dosage: 420 MG, Q4WK
     Route: 058
     Dates: start: 20130411, end: 20160630
  11. PREFILLED AUTOINJECTOR/PEN [Suspect]
     Active Substance: DEVICE
     Indication: HYPERCHOLESTEROLAEMIA
     Dosage: UNK
     Route: 058
     Dates: start: 20140213, end: 20160630
  12. SILODOSIN [Concomitant]
     Active Substance: SILODOSIN
     Dosage: 4 MG, BID
     Route: 048
     Dates: start: 20111124
  13. FELBINAC [Concomitant]
     Active Substance: FELBINAC
     Dosage: 3 %, AS NECESSARY
     Route: 062
     Dates: start: 20150828
  14. CARVEDILOL. [Concomitant]
     Active Substance: CARVEDILOL
     Dosage: 5 MG, BID
     Route: 048
     Dates: start: 20130911, end: 20170821
  15. TOCOPHEROL ACETATE [Concomitant]
     Active Substance: .ALPHA.-TOCOPHEROL ACETATE
     Dosage: 50 MG, BID
     Route: 048
     Dates: start: 20120607
  16. KETOPROFEN. [Concomitant]
     Active Substance: KETOPROFEN
     Dosage: 20 MG, AS NECESSARY
     Route: 062
     Dates: start: 20120410
  17. MAGNESIUM OXIDE. [Concomitant]
     Active Substance: MAGNESIUM OXIDE
     Dosage: 330 MG, TID
     Route: 048
     Dates: start: 20130911, end: 20160822
  18. BETAMETHASONE BUTYRATE PROPIONATE [Concomitant]
     Active Substance: BETAMETHASONE BUTYRATE PROPIONATE
     Dosage: 0.05 %, AS NECESSARY
     Route: 062
     Dates: start: 20090326
  19. BROTIZOLAM [Concomitant]
     Active Substance: BROTIZOLAM
     Dosage: 0.25 MG, AS NECESSARY
     Route: 048
     Dates: start: 20130823

REACTIONS (2)
  - Hepatic cancer metastatic [Fatal]
  - Adenocarcinoma gastric [Fatal]

NARRATIVE: CASE EVENT DATE: 20160624
